FAERS Safety Report 19523281 (Version 1)
Quarter: 2021Q3

REPORT INFORMATION
  Report Type: Spontaneous
  Country: AT (occurrence: AT)
  Receive Date: 20210712
  Receipt Date: 20210712
  Transmission Date: 20211014
  Serious: Yes (Other)
  Sender: FDA-Public Use
  Company Number: AT-PFIZER INC-2021803686

PATIENT
  Age: 52 Year
  Sex: Male

DRUGS (6)
  1. TRANYLCYPROMIN [Suspect]
     Active Substance: TRANYLCYPROMINE SULFATE
     Dosage: 20 MG
     Dates: start: 20210304, end: 20210308
  2. DEPAKINE CRONO [VALPROATE SODIUM;VALPROIC ACID] [Concomitant]
     Dosage: 1500 MG
     Dates: start: 20210218
  3. PREGABALIN. [Suspect]
     Active Substance: PREGABALIN
     Dosage: 1200 MG
     Dates: start: 20210126
  4. BEZAFIBRAT [Concomitant]
     Active Substance: BEZAFIBRATE
     Dosage: 400 MG
     Dates: start: 20210309
  5. TRANYLCYPROMIN [Suspect]
     Active Substance: TRANYLCYPROMINE SULFATE
     Dosage: 40 MG
     Dates: start: 20210309, end: 20210310
  6. DOMINAL [PROTHIPENDYL HYDROCHLORIDE] [Concomitant]
     Active Substance: PROTHIPENDYL HYDROCHLORIDE
     Dosage: 80 MG
     Dates: start: 20210222

REACTIONS (1)
  - Hypertensive crisis [Recovered/Resolved]

NARRATIVE: CASE EVENT DATE: 20210309
